FAERS Safety Report 15322152 (Version 1)
Quarter: 2018Q3

REPORT INFORMATION
  Report Type: Spontaneous
  Country: US (occurrence: US)
  Receive Date: 20180827
  Receipt Date: 20180827
  Transmission Date: 20181010
  Serious: Yes (Hospitalization, Other)
  Sender: FDA-Public Use
  Company Number: US-JNJFOC-20180833806

PATIENT
  Age: 62 Year
  Sex: Female

DRUGS (1)
  1. INVOKANA [Suspect]
     Active Substance: CANAGLIFLOZIN
     Indication: TYPE 2 DIABETES MELLITUS
     Route: 048
     Dates: start: 20150108, end: 20151230

REACTIONS (5)
  - Osteomyelitis [Unknown]
  - Amputation [Unknown]
  - Diabetic foot [Unknown]
  - Acute kidney injury [Unknown]
  - Gangrene [Unknown]

NARRATIVE: CASE EVENT DATE: 201509
